FAERS Safety Report 6586924-8 (Version None)
Quarter: 2010Q1

REPORT INFORMATION
  Report Type: 
  Country: None (occurrence: None)
  Receive Date: 20100217
  Receipt Date: 20090504
  Transmission Date: 20100710
  Serious: No
  Sender: FDA-Public Use
  Company Number: US-ALLERGAN-0903936US

PATIENT
  Sex: Female

DRUGS (4)
  1. BOTOX COSMETIC [Suspect]
     Indication: SKIN WRINKLING
     Dosage: UNK, SINGLE
     Route: 030
  2. BOTOX COSMETIC [Suspect]
     Dosage: UNK, SINGLE
     Route: 030
  3. BOTOX COSMETIC [Suspect]
     Dosage: UNK, SINGLE
     Route: 030
     Dates: start: 20081205, end: 20081205
  4. JUVEDERM [Concomitant]
     Dosage: UNK, SINGLE

REACTIONS (5)
  - ABNORMAL SENSATION IN EYE [None]
  - EYE IRRITATION [None]
  - EYELID PTOSIS [None]
  - FACIAL PARESIS [None]
  - SCAR [None]
